FAERS Safety Report 25836883 (Version 2)
Quarter: 2025Q4

REPORT INFORMATION
  Report Type: Report from Study
  Country: US (occurrence: US)
  Receive Date: 20250923
  Receipt Date: 20251028
  Transmission Date: 20260117
  Serious: Yes (Other)
  Sender: GILEAD
  Company Number: US-GILEAD-2025-0729589

PATIENT
  Sex: Male

DRUGS (22)
  1. SELADELPAR [Suspect]
     Active Substance: SELADELPAR
     Indication: Primary biliary cholangitis
     Dosage: 10MG PO DAILY
     Route: 048
     Dates: start: 20250818, end: 20251002
  2. BENZONATATE [Concomitant]
     Active Substance: BENZONATATE
     Dosage: 200 MG TAKE 1 CAPSULE BY MOUTH ONCE A DAY AS NEEDED
  3. BUPROPION HYDROCHLORIDE [Concomitant]
     Active Substance: BUPROPION HYDROCHLORIDE
     Dosage: 300 MG TAKE 1 TABLET BY MOUTH ONCE A DAY
  4. BUTALBITAL AND ACETAMINOPHEN [Concomitant]
     Active Substance: ACETAMINOPHEN\BUTALBITAL
     Dosage: TAKE 1 -2 TABLET BY ROUTE EVERY 4 HRS AS NEEDED NOT EXCEED 6 TABLETS PER 24HRS
  5. CARBIDOPA\LEVODOPA [Concomitant]
     Active Substance: CARBIDOPA\LEVODOPA
     Dosage: 25-100 MG TAKE 2 TABLET BY MOUTH FOUR TIMES A DAY
  6. CENTRUM SILVER [ASCORBIC ACID;BETACAROTENE;BIOTIN;CALCIUM;CHROMIUM;COL [Concomitant]
     Dosage: 400-250 MCG. TAKE 1TABLET BY MOUTH ONCE A DAY
  7. CRESTOR [Concomitant]
     Active Substance: ROSUVASTATIN CALCIUM
     Dosage: 5 RNG TAKE 1 TABLET BY MOUTH EVERY NIGHT
  8. CYANOCOBALAMIN [Concomitant]
     Active Substance: CYANOCOBALAMIN
     Dosage: 1,000 MCG TAKE 1 TABLET BY MOUTH ONCE A DAY
  9. DUTASTERIDE [Concomitant]
     Active Substance: DUTASTERIDE
     Dosage: TAKE 1 CAPSULE BY MOUTH EVERY NIGHT
  10. ESCITALOPRAM OXALATE [Concomitant]
     Active Substance: ESCITALOPRAM OXALATE
     Dosage: 10MG TAKE 1 TABLET BY MOUTH ONCE A DAY
  11. LEVOCETIRIZINE HYDROCHLORIDE [Concomitant]
     Active Substance: LEVOCETIRIZINE HYDROCHLORIDE
     Dosage: 5 MG TAKE 1 TABLET BY MOUTH ONCE A DAY
  12. LINZESS [Concomitant]
     Active Substance: LINACLOTIDE
     Dosage: 290 UG, QD
  13. MELATONIN [Concomitant]
     Active Substance: MELATONIN
     Dosage: 3 MG TAKE 1 TABLET BY MOUTH AT BEDTLME
  14. MIDODRINE [Concomitant]
     Active Substance: MIDODRINE
     Dosage: 5 MG TAKE 1 TABLET BY MOUTH TWICE A DAY
  15. MIRALAX [Concomitant]
     Active Substance: POLYETHYLENE GLYCOL 3350
     Dosage: 17 G, QD
  16. MONTELUKAST [Concomitant]
     Active Substance: MONTELUKAST
     Dosage: 10 MG TAKE 1 TABLET BY MOUTH ONCE A DAY
  17. PANTOPRAZOLE [Concomitant]
     Active Substance: PANTOPRAZOLE
     Dosage: 40 MG TAKE 1 TABLET BY MOUTH ONCE A DAY
  18. RESTASIS [Concomitant]
     Active Substance: CYCLOSPORINE
     Dosage: 0.05% INSTILL1 DROP INTO EYES TWICE A DAY
  19. TRAZODONE [Concomitant]
     Active Substance: TRAZODONE HYDROCHLORIDE
     Dosage: 300 MG TAKE 1 + 1/2 TABLET BY MOUTH ONCE A DAY
  20. TRELEGY ELLIPTA [Concomitant]
     Active Substance: FLUTICASONE FUROATE\UMECLIDINIUM BROMIDE\VILANTEROL TRIFENATATE
     Dosage: 100-62.5-25 MCG INHALE PUFF BY MOUTH ONCE A DAY
  21. URSODIOL [Concomitant]
     Active Substance: URSODIOL
     Indication: Primary biliary cholangitis
     Dosage: 500 MG TAKE ONE (1) TABLET BY MOUTH TWICE DAILY
  22. CARAFATE [Concomitant]
     Active Substance: SUCRALFATE
     Dosage: 1 G, QD

REACTIONS (10)
  - Parkinson^s disease [Unknown]
  - Asthenia [Unknown]
  - Fatigue [Unknown]
  - Somnolence [Unknown]
  - Balance disorder [Not Recovered/Not Resolved]
  - Confusional state [Not Recovered/Not Resolved]
  - Pruritus [Unknown]
  - Red cell distribution width decreased [Unknown]
  - Blood urea increased [Unknown]
  - Blood urea nitrogen/creatinine ratio increased [Unknown]
